FAERS Safety Report 10418999 (Version 1)
Quarter: 2014Q2

REPORT INFORMATION
  Report Type: Report from Study
  Country: US (occurrence: None)
  Receive Date: 20140627
  Receipt Date: 20140627
  Transmission Date: 20141212
  Serious: No
  Sender: FDA-Public Use
  Company Number: CABO-14004342

PATIENT
  Age: 52 Year
  Sex: Female

DRUGS (6)
  1. COMETRIQ (CABOZANTINIB) CAPSULE [Suspect]
     Indication: THYROID CANCER
     Route: 048
     Dates: start: 20140507
  2. CYMBALTA (DULOXETINE HYDROCHLORIDE) [Concomitant]
  3. SYNTHROID (LEVOTHYROXINE SODIUM) [Concomitant]
  4. OMEPRAZOLE [Concomitant]
  5. PREDNISONE [Concomitant]
  6. DEXILANT (DEXLANSOPRAZOLE) [Concomitant]

REACTIONS (7)
  - Facial pain [None]
  - Oropharyngeal pain [None]
  - Oral pain [None]
  - Glossodynia [None]
  - Dry mouth [None]
  - Gastrooesophageal reflux disease [None]
  - Abnormal behaviour [None]
